FAERS Safety Report 21873011 (Version 1)
Quarter: 2023Q1

REPORT INFORMATION
  Report Type: Spontaneous
  Country: US (occurrence: None)
  Receive Date: 20230116
  Receipt Date: 20230116
  Transmission Date: 20230417
  Serious: No
  Sender: FDA-Public Use
  Company Number: None

PATIENT
  Age: 74 Year
  Sex: Female
  Weight: 67.49 kg

DRUGS (28)
  1. TEMOZOLOMIDE [Suspect]
     Active Substance: TEMOZOLOMIDE
     Indication: Brain neoplasm malignant
     Dosage: FREQUENCY : DAILY;?
     Route: 048
  2. AVASTIN [Concomitant]
     Active Substance: BEVACIZUMAB
  3. BACLOFEN [Concomitant]
     Active Substance: BACLOFEN
  4. DEXAMETHASONE [Concomitant]
     Active Substance: DEXAMETHASONE
  5. ELIQUIS [Concomitant]
     Active Substance: APIXABAN
  6. ENOXAPARIN [Concomitant]
     Active Substance: ENOXAPARIN
  7. FAMOTIDINE [Concomitant]
     Active Substance: FAMOTIDINE
  8. GLEOSTIN [Concomitant]
  9. NORCO [Concomitant]
     Active Substance: ACETAMINOPHEN\HYDROCODONE BITARTRATE
  10. KEPPRA [Concomitant]
     Active Substance: LEVETIRACETAM
  11. LEVEIRACETAM [Concomitant]
  12. LEVOFLOXACIN [Concomitant]
     Active Substance: LEVOFLOXACIN
  13. LIDOCAINE [Concomitant]
     Active Substance: LIDOCAINE
  14. LORAZEPAM [Concomitant]
     Active Substance: LORAZEPAM
  15. METHOCARBAMOL [Concomitant]
     Active Substance: METHOCARBAMOL
  16. METOCLOPRAMIDE [Concomitant]
     Active Substance: METOCLOPRAMIDE
  17. OMEPRAZOLE [Concomitant]
     Active Substance: OMEPRAZOLE
  18. ONDANSETRON [Concomitant]
     Active Substance: ONDANSETRON
  19. OXYCODONE [Concomitant]
     Active Substance: OXYCODONE
  20. PHENYTOID [Concomitant]
  21. POYETHYLENE GLYCOL [Concomitant]
  22. POTASSIUM CHLORIDE [Concomitant]
     Active Substance: POTASSIUM CHLORIDE
  23. SERTRALINE [Concomitant]
     Active Substance: SERTRALINE HYDROCHLORIDE
  24. BACTRIM [Concomitant]
  25. TRAMADOL [Concomitant]
     Active Substance: TRAMADOL
  26. TRAZODONE [Concomitant]
     Active Substance: TRAZODONE HYDROCHLORIDE
  27. TYLENOL PM [Concomitant]
     Active Substance: ACETAMINOPHEN\DIPHENHYDRAMINE
  28. XARELTO [Concomitant]
     Active Substance: RIVAROXABAN

REACTIONS (1)
  - Neoplasm progression [None]
